FAERS Safety Report 11790776 (Version 2)
Quarter: 2015Q4

REPORT INFORMATION
  Report Type: Spontaneous
  Country: BR (occurrence: BR)
  Receive Date: 20151201
  Receipt Date: 20151210
  Transmission Date: 20160305
  Serious: Yes (Death, Hospitalization)
  Sender: FDA-Public Use
  Company Number: BR-SA-2015SA197844

PATIENT
  Age: 70 Year
  Sex: Female
  Weight: 58 kg

DRUGS (3)
  1. TAXOTERE [Suspect]
     Active Substance: DOCETAXEL
     Indication: NEOPLASM MALIGNANT
     Route: 065
     Dates: start: 20150623
  2. DIFENIDRIN [Suspect]
     Active Substance: DIPHENHYDRAMINE
     Route: 042
  3. TAXOTERE [Suspect]
     Active Substance: DOCETAXEL
     Indication: NEOPLASM MALIGNANT
     Route: 065
     Dates: start: 20150623

REACTIONS (4)
  - Dyspnoea [Fatal]
  - Diarrhoea [Unknown]
  - Mucosal inflammation [Unknown]
  - Condition aggravated [Fatal]

NARRATIVE: CASE EVENT DATE: 2015
